FAERS Safety Report 25327476 (Version 1)
Quarter: 2025Q2

REPORT INFORMATION
  Report Type: Spontaneous
  Country: GB (occurrence: GB)
  Receive Date: 20250517
  Receipt Date: 20250517
  Transmission Date: 20250717
  Serious: Yes (Other)
  Sender: AUROBINDO
  Company Number: GB-MHRA-MED-202505030751040010-TGSJZ

PATIENT
  Age: 35 Year
  Sex: Female

DRUGS (3)
  1. FEXOFENADINE [Suspect]
     Active Substance: FEXOFENADINE HYDROCHLORIDE
     Indication: Product used for unknown indication
     Route: 065
  2. LEVOTHYROXINE [Concomitant]
     Active Substance: LEVOTHYROXINE
     Indication: Hypothyroidism
     Route: 065
  3. METROGEL [Concomitant]
     Active Substance: METRONIDAZOLE
     Indication: Adverse drug reaction
     Route: 065

REACTIONS (1)
  - Amenorrhoea [Unknown]
